FAERS Safety Report 23672327 (Version 1)
Quarter: 2024Q1

REPORT INFORMATION
  Report Type: Spontaneous
  Country: US (occurrence: US)
  Receive Date: 20240326
  Receipt Date: 20240326
  Transmission Date: 20240410
  Serious: Yes (Death, Other)
  Sender: FDA-Public Use
  Company Number: US-AMGEN-USASP2024058423

PATIENT
  Age: 77 Year
  Sex: Female

DRUGS (4)
  1. RITUXIMAB [Suspect]
     Active Substance: RITUXIMAB
     Indication: B-cell prolymphocytic leukaemia
     Dosage: UNK
     Route: 065
     Dates: start: 2021
  2. RITUXIMAB [Suspect]
     Active Substance: RITUXIMAB
     Dosage: UNK
     Route: 065
     Dates: start: 202202, end: 2022
  3. GEMCITABINE [Concomitant]
     Active Substance: GEMCITABINE
     Indication: B-cell prolymphocytic leukaemia
     Dosage: UNK
     Dates: start: 202104
  4. OXALIPLATIN [Concomitant]
     Active Substance: OXALIPLATIN
     Indication: B-cell prolymphocytic leukaemia
     Dosage: UNK
     Dates: start: 202104

REACTIONS (6)
  - Death [Fatal]
  - Metastases to abdominal cavity [Unknown]
  - B-cell prolymphocytic leukaemia [Unknown]
  - Therapy non-responder [Unknown]
  - Drug intolerance [Unknown]
  - Off label use [Unknown]

NARRATIVE: CASE EVENT DATE: 20210101
